FAERS Safety Report 19091540 (Version 1)
Quarter: 2021Q2

REPORT INFORMATION
  Report Type: Spontaneous
  Country: US (occurrence: US)
  Receive Date: 20210405
  Receipt Date: 20210405
  Transmission Date: 20210717
  Serious: No
  Sender: FDA-Public Use
  Company Number: US-DRREDDYS-USA/USA/21/0133538

PATIENT
  Age: 38 Year
  Sex: Female

DRUGS (3)
  1. LORAZEPAM INJECTION USP, 2 MG/ML AND 4 MG/ML [Concomitant]
     Active Substance: LORAZEPAM
     Indication: ANXIETY
     Dosage: ONCE A DAY
  2. QUETIAPINE FUMARATE TABLETS [Suspect]
     Active Substance: QUETIAPINE FUMARATE
     Indication: INSOMNIA
     Dosage: AT BEDTIME
     Route: 048
  3. DEXTROAMPHETAMINE, AMPHETAMINE [Concomitant]
     Indication: ATTENTION DEFICIT HYPERACTIVITY DISORDER

REACTIONS (1)
  - Somnolence [Unknown]
